FAERS Safety Report 12488440 (Version 1)
Quarter: 2016Q2

REPORT INFORMATION
  Report Type: Report from Study
  Country: CN (occurrence: CN)
  Receive Date: 20160622
  Receipt Date: 20160622
  Transmission Date: 20160815
  Serious: Yes (Hospitalization)
  Sender: FDA-Public Use
  Company Number: CN-ASTRAZENECA-2016SE66393

PATIENT
  Sex: Male

DRUGS (8)
  1. BYETTA [Suspect]
     Active Substance: EXENATIDE
     Indication: HYPOGLYCAEMIA
     Route: 058
     Dates: start: 20160517, end: 20160521
  2. BYETTA [Suspect]
     Active Substance: EXENATIDE
     Indication: DIABETES MELLITUS
     Dosage: 5UG TWICE IN THE MORNING AND EVENING RESPECTIVELY
     Route: 058
     Dates: start: 20160521, end: 20160608
  3. BYETTA [Suspect]
     Active Substance: EXENATIDE
     Indication: DIABETES MELLITUS
     Route: 058
     Dates: start: 20160608, end: 20160612
  4. BYETTA [Suspect]
     Active Substance: EXENATIDE
     Indication: HYPOGLYCAEMIA
     Route: 058
     Dates: start: 20160608, end: 20160612
  5. INSULIN GLARGINE [Concomitant]
     Active Substance: INSULIN GLARGINE
     Indication: DIABETES MELLITUS
     Dosage: 18 UNITS IN THE EVENING
     Route: 058
  6. BYETTA [Suspect]
     Active Substance: EXENATIDE
     Indication: HYPOGLYCAEMIA
     Dosage: 5UG TWICE IN THE MORNING AND EVENING RESPECTIVELY
     Route: 058
     Dates: start: 20160521, end: 20160608
  7. INSULIN ASPART [Concomitant]
     Active Substance: INSULIN ASPART
     Indication: DIABETES MELLITUS
     Dosage: 7 UNITS IN THE EVENING
     Route: 058
  8. BYETTA [Suspect]
     Active Substance: EXENATIDE
     Indication: DIABETES MELLITUS
     Route: 058
     Dates: start: 20160517, end: 20160521

REACTIONS (4)
  - Amylase increased [Unknown]
  - Intentional product misuse [Unknown]
  - Diarrhoea [Unknown]
  - Drug ineffective [Unknown]

NARRATIVE: CASE EVENT DATE: 20160608
